FAERS Safety Report 23253202 (Version 1)
Quarter: 2023Q4

REPORT INFORMATION
  Report Type: Spontaneous
  Country: FR (occurrence: FR)
  Receive Date: 20231202
  Receipt Date: 20231202
  Transmission Date: 20240110
  Serious: Yes (Hospitalization)
  Sender: FDA-Public Use
  Company Number: FR-AFSSAPS-LL2023002038

PATIENT
  Age: 84 Year
  Sex: Female
  Weight: 55.8 kg

DRUGS (1)
  1. PERINDOPRIL [Suspect]
     Active Substance: PERINDOPRIL
     Indication: Hypertension
     Dosage: 2 MILLIGRAM
     Route: 065

REACTIONS (1)
  - Tongue oedema [Recovered/Resolved]

NARRATIVE: CASE EVENT DATE: 20230525
